FAERS Safety Report 5649551-2 (Version None)
Quarter: 2008Q1

REPORT INFORMATION
  Report Type: 
  Country: None (occurrence: None)
  Receive Date: 20080304
  Receipt Date: 20080229
  Transmission Date: 20080703
  Serious: Yes (Other)
  Sender: FDA-Public Use
  Company Number: US-SANOFI-SYNTHELABO-F01200800346

PATIENT
  Sex: Male

DRUGS (9)
  1. GENERIC UNKNOWN [Concomitant]
     Dosage: UNK
     Dates: start: 20050316
  2. AMBIEN [Concomitant]
     Dosage: UNK
     Dates: start: 20050309
  3. MAGNESIUM [Concomitant]
     Dosage: UNK
     Dates: start: 20050511, end: 20050817
  4. CALCIUM [Concomitant]
     Dosage: UNK
     Dates: start: 20050511, end: 20050817
  5. CITRUCEL [Concomitant]
     Dosage: UNK
     Dates: start: 20050304, end: 20050325
  6. BEVACIZUMAB [Suspect]
     Route: 042
  7. LEUCOVORIN CALCIUM [Suspect]
     Route: 041
  8. FLUOROURACIL [Suspect]
     Dosage: 400MG/M2 IV BOLUS AND 600MG/M2 CONTINUOUS INFUSION Q2W
     Route: 042
  9. OXALIPLATIN [Suspect]
     Indication: COLON CANCER
     Route: 041
     Dates: start: 20050330, end: 20050330

REACTIONS (1)
  - ANAL FISTULA [None]
